FAERS Safety Report 9782515 (Version 2)
Quarter: 2014Q1

REPORT INFORMATION
  Report Type: Report from Study
  Country: US (occurrence: US)
  Receive Date: 20131226
  Receipt Date: 20140124
  Transmission Date: 20141002
  Serious: Yes (Hospitalization)
  Sender: FDA-Public Use
  Company Number: PHEH2013US026275

PATIENT
  Sex: Female

DRUGS (12)
  1. TASIGNA [Suspect]
     Indication: NEOPLASM MALIGNANT
     Dosage: 200 MG, QD
     Route: 048
     Dates: start: 20111007
  2. TASIGNA [Suspect]
     Indication: OFF LABEL USE
  3. CEFDINIR [Concomitant]
     Indication: INFECTION
  4. CELEBREX [Concomitant]
  5. DEXILANT [Concomitant]
  6. ATENOLOL [Concomitant]
  7. TRAMADOL [Concomitant]
  8. HYDROCHLOROTHIAZIDE W/TRIAMTERENE [Concomitant]
  9. CITALOPRAM HYDROBROMIDE [Concomitant]
  10. ALLOPURINOL [Concomitant]
  11. TEMAZEPAM [Concomitant]
  12. FERROUS SULPHATE [Concomitant]

REACTIONS (4)
  - Listless [Recovering/Resolving]
  - White blood cell count increased [Recovering/Resolving]
  - Pyrexia [Recovering/Resolving]
  - Decreased appetite [Recovering/Resolving]
